FAERS Safety Report 14210589 (Version 1)
Quarter: 2017Q4

REPORT INFORMATION
  Report Type: Spontaneous
  Country: FR (occurrence: FR)
  Receive Date: 20171121
  Receipt Date: 20171121
  Transmission Date: 20180321
  Serious: Yes (Other)
  Sender: FDA-Public Use
  Company Number: FR-PFIZER INC-2017495884

PATIENT
  Age: 74 Year
  Sex: Female

DRUGS (4)
  1. LINEZOLID. [Suspect]
     Active Substance: LINEZOLID
     Indication: PNEUMONIA
     Dosage: 2 DF, 1X/DAY
     Route: 042
     Dates: start: 20170930, end: 20171001
  2. TAZOCILLINE [Suspect]
     Active Substance: PIPERACILLIN SODIUM\TAZOBACTAM SODIUM
     Indication: PNEUMONIA
     Dosage: 3 DF, 1X/DAY
     Route: 042
     Dates: start: 20170930, end: 20171005
  3. ROVAMYCINE /00074404/ [Suspect]
     Active Substance: SPIRAMYCIN ADIPATE
     Indication: PNEUMONIA
     Dosage: 2 DF, 1X/DAY
     Route: 042
     Dates: start: 20171001, end: 20171005
  4. AUGMENTIN [Suspect]
     Active Substance: AMOXICILLIN\CLAVULANATE POTASSIUM
     Indication: PNEUMONIA
     Dosage: 2 DF, 3X/DAY (MORNING, MIDDAY, EVENING)
     Route: 048
     Dates: start: 20170920, end: 20170930

REACTIONS (2)
  - Condition aggravated [Recovered/Resolved]
  - Erythema [Recovered/Resolved]

NARRATIVE: CASE EVENT DATE: 20171003
